FAERS Safety Report 9860152 (Version 1)
Quarter: 2014Q1

REPORT INFORMATION
  Report Type: Spontaneous
  Country: TR (occurrence: TR)
  Receive Date: 20140201
  Receipt Date: 20140201
  Transmission Date: 20141002
  Serious: Yes (Other)
  Sender: FDA-Public Use
  Company Number: TR-ACCORD-021609

PATIENT
  Age: 57 Year
  Sex: Female

DRUGS (2)
  1. FLUOROURACIL [Suspect]
     Indication: RECTAL ADENOCARCINOMA
     Dosage: EVERY 14 DAYS FOR 2 DAYS (DAY 1: 5-FU 400 MG/M2 FOR?2 HOUR, DAYS 1 AND 2: 5-FU 2400 FOR 46 HOUR)
     Route: 040
  2. FOLINIC ACID [Suspect]
     Indication: RECTAL ADENOCARCINOMA
     Dosage: EVERY 14 DAYS FOR 2 DAYS (DAY 1:400MG/M2 INFUSION FOR 2 HOUR)
     Route: 041

REACTIONS (4)
  - Photophobia [Unknown]
  - Eye pain [Unknown]
  - Conjunctivitis [Unknown]
  - Palmar-plantar erythrodysaesthesia syndrome [Unknown]
